FAERS Safety Report 7971090-4 (Version None)
Quarter: 2011Q4

REPORT INFORMATION
  Report Type: 
  Country: None (occurrence: None)
  Receive Date: 20111212
  Receipt Date: 20111212
  Transmission Date: 20120403
  Serious: Yes (Hospitalization, Other)
  Sender: FDA-Public Use
  Company Number: None

PATIENT
  Age: 60 Year
  Sex: Female
  Weight: 72.121 kg

DRUGS (8)
  1. OXYCODONE HCL [Concomitant]
     Indication: MYELOPATHY
     Dosage: 15 MG
     Route: 048
     Dates: start: 20110901, end: 20111201
  2. OXYCODONE HCL [Concomitant]
     Indication: PAIN
     Dosage: 15 MG
     Route: 048
     Dates: start: 20110901, end: 20111201
  3. OXYCODONE HCL [Concomitant]
     Indication: CERVICOBRACHIAL SYNDROME
     Dosage: 15 MG
     Route: 048
     Dates: start: 20110901, end: 20111201
  4. OXYCODONE HCL [Concomitant]
     Indication: FACET JOINT SYNDROME
     Dosage: 15 MG
     Route: 048
     Dates: start: 20110901, end: 20111201
  5. OXYCONTIN [Suspect]
     Indication: MYELOPATHY
     Dosage: 30 MG
     Route: 048
     Dates: start: 20080601, end: 20111201
  6. OXYCONTIN [Suspect]
     Indication: CERVICOBRACHIAL SYNDROME
     Dosage: 30 MG
     Route: 048
     Dates: start: 20080601, end: 20111201
  7. OXYCONTIN [Suspect]
     Indication: PAIN
     Dosage: 30 MG
     Route: 048
     Dates: start: 20080601, end: 20111201
  8. OXYCONTIN [Suspect]
     Indication: FACET JOINT SYNDROME
     Dosage: 30 MG
     Route: 048
     Dates: start: 20080601, end: 20111201

REACTIONS (7)
  - PRODUCT DISTRIBUTION ISSUE [None]
  - TREATMENT NONCOMPLIANCE [None]
  - DRUG WITHDRAWAL SYNDROME [None]
  - PAIN [None]
  - CRYING [None]
  - SUICIDAL IDEATION [None]
  - HEADACHE [None]
